FAERS Safety Report 6162784 (Version 2)
Quarter: 2019Q1

REPORT INFORMATION
  Report Type: Spontaneous
  Country: FR (occurrence: FR)
  Receive Date: 20061107
  Receipt Date: 20190204
  Transmission Date: 20190418
  Serious: Yes (Hospitalization, Other)
  Sender: FDA-Public Use
  Company Number: FR-GILEAD-2006-0010557

PATIENT
  Age: 52 Year
  Sex: Male
  Weight: 55 kg

DRUGS (10)
  1. TRIATEC [Concomitant]
  2. TRUVADA [Suspect]
     Active Substance: EMTRICITABINE\TENOFOVIR DISOPROXIL FUMARATE
     Indication: HIV INFECTION
     Route: 048
     Dates: start: 20060829, end: 20060912
  3. INVIRASE [Suspect]
     Active Substance: SAQUINAVIR MESYLATE
     Indication: HEPATITIS C
  4. NORVIR [Suspect]
     Active Substance: RITONAVIR
     Indication: HIV INFECTION
     Route: 048
     Dates: start: 20060829, end: 20060912
  5. LOGIMAX [Concomitant]
     Active Substance: FELODIPINE\METOPROLOL SUCCINATE
  6. ESIDREX [Concomitant]
     Active Substance: HYDROCHLOROTHIAZIDE
  7. BACTRIM [Concomitant]
     Active Substance: SULFAMETHOXAZOLE\TRIMETHOPRIM
  8. TRUVADA [Suspect]
     Active Substance: EMTRICITABINE\TENOFOVIR DISOPROXIL FUMARATE
     Indication: HEPATITIS C
  9. INVIRASE [Suspect]
     Active Substance: SAQUINAVIR MESYLATE
     Indication: HIV INFECTION
     Route: 048
     Dates: start: 20060829, end: 20060912
  10. NORVIR [Suspect]
     Active Substance: RITONAVIR
     Indication: HEPATITIS C

REACTIONS (3)
  - Musculoskeletal stiffness [Recovered/Resolved]
  - Nausea [Unknown]
  - Acute kidney injury [Recovered/Resolved]

NARRATIVE: CASE EVENT DATE: 20060910
